FAERS Safety Report 6775110-4 (Version None)
Quarter: 2010Q2

REPORT INFORMATION
  Report Type: 
  Country: None (occurrence: None)
  Receive Date: 20100617
  Receipt Date: 20100616
  Transmission Date: 20101027
  Serious: Yes (Life-Threatening, Hospitalization)
  Sender: FDA-Public Use
  Company Number: Z0002095C

PATIENT
  Sex: Female
  Weight: 65 kg

DRUGS (3)
  1. PAZOPANIB [Suspect]
     Indication: NON-SMALL CELL LUNG CANCER
     Dosage: 800MG PER DAY
     Route: 048
     Dates: start: 20090825
  2. PEMETREXED [Suspect]
     Indication: NON-SMALL CELL LUNG CANCER
     Dosage: 500MGM2 CYCLIC
     Route: 042
     Dates: start: 20090825
  3. LORAZEPAM [Concomitant]
     Indication: PROPHYLAXIS
     Dosage: 1MG AS REQUIRED
     Route: 048
     Dates: start: 20100608

REACTIONS (2)
  - DYSPNOEA [None]
  - PNEUMONITIS [None]
